FAERS Safety Report 14970557 (Version 2)
Quarter: 2018Q2

REPORT INFORMATION
  Report Type: Spontaneous
  Country: DE (occurrence: DE)
  Receive Date: 20180604
  Receipt Date: 20180621
  Transmission Date: 20180711
  Serious: Yes (Other)
  Sender: FDA-Public Use
  Company Number: DE-PFIZER INC-2018227765

PATIENT
  Age: 61 Year
  Sex: Male

DRUGS (15)
  1. ABSTRAL [Suspect]
     Active Substance: FENTANYL CITRATE
     Dosage: 200 UG, DAILY (200 UG, AS NECESARY UP TO 4 TIMES DAILY)
     Route: 060
     Dates: start: 20180410
  2. CLEXANE [Concomitant]
     Active Substance: ENOXAPARIN SODIUM
     Dosage: 0.4 ML, 0-0-1
     Route: 058
  3. ABSTRAL [Suspect]
     Active Substance: FENTANYL CITRATE
     Dosage: 2 DF, DAILY (2 DOSAGE FORMS PRIOR TO DRESSING CHANGES AND DRESSING CHANGE ONLY ONCE DAILY)
     Route: 060
     Dates: start: 20180407
  4. ABSTRAL [Suspect]
     Active Substance: FENTANYL CITRATE
     Dosage: 200 UG, DAILY (200 UG, PRIOR TO DRESSING CHANGES)
     Route: 060
     Dates: start: 201804
  5. MST [Suspect]
     Active Substance: MORPHINE SULFATE\NALTREXONE HYDROCHLORIDE
     Dosage: UNK
     Route: 065
     Dates: start: 20180302
  6. ABSTRAL [Suspect]
     Active Substance: FENTANYL CITRATE
     Dosage: 100 UG, DAILY (100 UG, PRN)
     Route: 060
     Dates: start: 20180302
  7. ABSTRAL [Suspect]
     Active Substance: FENTANYL CITRATE
     Dosage: UNK, 30 MIN PRIOR TO DRESSING CHANGES
     Route: 060
     Dates: start: 20180405
  8. CITALOPRAM [Concomitant]
     Active Substance: CITALOPRAM HYDROBROMIDE
     Dosage: 20 MG, 1-0-0
     Route: 065
  9. NOVALGIN [Concomitant]
     Dosage: 1500 MG, 1X/DAY (500 MG, 1-1-1)
     Route: 065
  10. DRONABINOL. [Concomitant]
     Active Substance: DRONABINOL
     Dosage: 12 DROP, 1X/DAY (6 GTT, 1-0-1)
     Route: 065
  11. MIDAZOLAM [Suspect]
     Active Substance: MIDAZOLAM HYDROCHLORIDE
     Dosage: 2.5 MG, UNK
     Route: 058
     Dates: start: 201804
  12. MST [Suspect]
     Active Substance: MORPHINE SULFATE\NALTREXONE HYDROCHLORIDE
     Dosage: 4 DF, DAILY (10 MG, 2-0-2)
     Route: 065
     Dates: start: 20180302
  13. FORTECORTIN [Concomitant]
     Active Substance: DEXAMETHASONE
     Dosage: 24 MG, 1X/DAY (8 MG, 1-1-1)
     Route: 042
  14. PANTOPRAZOLE [Concomitant]
     Active Substance: PANTOPRAZOLE
     Dosage: 40 MG, 1-0-0
     Route: 065
  15. MORPHINE SULFATE. [Suspect]
     Active Substance: MORPHINE SULFATE
     Dosage: UNK
     Route: 065
     Dates: start: 20180425

REACTIONS (7)
  - Abscess [Unknown]
  - Abscess rupture [Unknown]
  - Lymphoedema [Unknown]
  - Dyspnoea [Unknown]
  - Inflammation of wound [Unknown]
  - Drug ineffective [Recovering/Resolving]
  - Generalised tonic-clonic seizure [Recovered/Resolved]

NARRATIVE: CASE EVENT DATE: 2018
